FAERS Safety Report 6290039-6 (Version None)
Quarter: 2009Q3

REPORT INFORMATION
  Report Type: 
  Country: None (occurrence: None)
  Receive Date: 20090730
  Receipt Date: 20090721
  Transmission Date: 20100115
  Serious: Yes (Death)
  Sender: FDA-Public Use
  Company Number: SA-JNJFOC-20090707245

PATIENT
  Age: 16 Year
  Sex: Male

DRUGS (4)
  1. INFLIXIMAB [Suspect]
     Indication: GRAFT VERSUS HOST DISEASE
     Route: 042
  2. CYCLOSPORINE [Suspect]
     Indication: GRAFT VERSUS HOST DISEASE
     Route: 042
  3. PREDNISONE [Suspect]
     Dosage: HIGH DOSE
  4. PREDNISONE [Suspect]
     Indication: GRAFT VERSUS HOST DISEASE
     Dosage: HIGH DOSE

REACTIONS (1)
  - ASPERGILLOSIS [None]
